FAERS Safety Report 7913803-3 (Version None)
Quarter: 2011Q4

REPORT INFORMATION
  Report Type: 
  Country: None (occurrence: None)
  Receive Date: 20111115
  Receipt Date: 20111104
  Transmission Date: 20120403
  Serious: No
  Sender: FDA-Public Use
  Company Number: US-JNJFOC-20111102305

PATIENT
  Age: 68 Year
  Sex: Female

DRUGS (1)
  1. INVEGA SUSTENNA [Suspect]
     Indication: SCHIZOPHRENIA
     Route: 030

REACTIONS (6)
  - URINARY TRACT INFECTION [None]
  - ABNORMAL BEHAVIOUR [None]
  - HALLUCINATION [None]
  - ANORGASMIA [None]
  - DIZZINESS [None]
  - GAIT DISTURBANCE [None]
